FAERS Safety Report 5528464-0 (Version None)
Quarter: 2007Q4

REPORT INFORMATION
  Report Type: 
  Country: None (occurrence: None)
  Receive Date: 20071128
  Receipt Date: 20071114
  Transmission Date: 20080405
  Serious: No
  Sender: FDA-Public Use
  Company Number: US-BOEHRINGER INGELHEIM PHARMACEUTICALS, INC.-2007-BP-24606BP

PATIENT
  Age: 78 Year
  Sex: Male

DRUGS (12)
  1. SPIRIVA [Suspect]
     Indication: CHRONIC OBSTRUCTIVE PULMONARY DISEASE
     Route: 055
     Dates: start: 20040101
  2. IMDUR [Concomitant]
     Indication: CARDIAC DISORDER
     Route: 048
  3. PROSCAR [Concomitant]
     Route: 048
  4. PLAVIX [Concomitant]
     Indication: ANTICOAGULANT THERAPY
     Route: 048
  5. NORVASC [Concomitant]
     Indication: CARDIAC DISORDER
     Route: 048
  6. IRON [Concomitant]
     Indication: SUPPLEMENTATION THERAPY
     Route: 048
  7. LASIX [Concomitant]
     Indication: CARDIAC DISORDER
     Route: 048
  8. HYTRIN [Concomitant]
     Indication: PROSTATIC DISORDER
     Route: 048
  9. ZOCOR [Concomitant]
     Indication: BLOOD CHOLESTEROL INCREASED
     Route: 048
  10. ZETIA [Concomitant]
     Indication: BLOOD CHOLESTEROL INCREASED
     Route: 048
  11. ASPIRIN [Concomitant]
     Indication: CARDIOVASCULAR DISORDER
     Route: 048
  12. INSULIN [Concomitant]
     Indication: DIABETES MELLITUS

REACTIONS (1)
  - DYSPNOEA [None]
